FAERS Safety Report 13647655 (Version 1)
Quarter: 2017Q2

REPORT INFORMATION
  Report Type: Spontaneous
  Country: CN (occurrence: CN)
  Receive Date: 20170613
  Receipt Date: 20170613
  Transmission Date: 20170830
  Serious: Yes (Death, Other)
  Sender: FDA-Public Use
  Company Number: CN-MYLANLABS-2017M1035212

PATIENT

DRUGS (9)
  1. BETAMIPRON [Concomitant]
     Active Substance: BETAMIPRON
     Indication: ANTI-INFECTIVE THERAPY
     Dosage: UNK
     Route: 065
  2. POSACONAZOLE [Concomitant]
     Active Substance: POSACONAZOLE
     Indication: ANTI-INFECTIVE THERAPY
     Dosage: UNK
     Route: 065
  3. TACROLIMUS. [Suspect]
     Active Substance: TACROLIMUS
     Indication: PARANEOPLASTIC PEMPHIGUS
     Dosage: 0.5 MG, BID
     Route: 065
  4. CICLOSPORIN [Suspect]
     Active Substance: CYCLOSPORINE
     Indication: PARANEOPLASTIC PEMPHIGUS
     Dosage: 150 MG FOR 24 HOURS
     Route: 042
  5. CYCLOPHOSPHAMIDE. [Suspect]
     Active Substance: CYCLOPHOSPHAMIDE
     Indication: PARANEOPLASTIC PEMPHIGUS
     Dosage: 1000MG ONCE A DAY FOR 2 DAYS
     Route: 065
  6. VANCOMYCIN [Concomitant]
     Active Substance: VANCOMYCIN
     Indication: ANTI-INFECTIVE THERAPY
     Dosage: UNK
     Route: 065
  7. METHYLPREDNISOLONE. [Suspect]
     Active Substance: METHYLPREDNISOLONE
     Indication: PARANEOPLASTIC PEMPHIGUS
     Dosage: 40 MG DAILY; INCREASED TO 40 MG TWICE A DAY
     Route: 065
  8. METHYLPREDNISOLONE. [Suspect]
     Active Substance: METHYLPREDNISOLONE
     Dosage: 40 MG, BID
     Route: 065
  9. PANIPENEM [Concomitant]
     Active Substance: PANIPENEM
     Indication: ANTI-INFECTIVE THERAPY
     Dosage: UNK
     Route: 065

REACTIONS (2)
  - Infection [Unknown]
  - Respiratory failure [Fatal]
